FAERS Safety Report 5351967-9 (Version None)
Quarter: 2007Q2

REPORT INFORMATION
  Report Type: 
  Country: None (occurrence: None)
  Receive Date: 20070522
  Receipt Date: 20060710
  Transmission Date: 20071010
  Serious: Yes (Other)
  Sender: FDA-Public Use
  Company Number: NARC20060002

PATIENT
  Age: 52 Year
  Sex: Female
  Weight: 72.5755 kg

DRUGS (16)
  1. NARCAN [Suspect]
  2. METHADONE HCL [Concomitant]
  3. PREDNISONE TAB [Concomitant]
  4. GABAPENTIN [Concomitant]
  5. LISINOPRIL [Concomitant]
  6. ZANAFLEX [Concomitant]
  7. LORATADINE [Concomitant]
  8. BUMETANIDE [Concomitant]
  9. ALPRAZOLAM [Concomitant]
  10. LEVOTHYROXINE SODIUM [Concomitant]
  11. NAPROXEN [Concomitant]
  12. LANTUS [Concomitant]
  13. HUMALOG [Concomitant]
  14. STARLIX [Concomitant]
  15. REGLAN [Concomitant]
  16. ATIVAN [Concomitant]

REACTIONS (5)
  - CONVULSION [None]
  - FAECAL INCONTINENCE [None]
  - HALLUCINATION [None]
  - SCREAMING [None]
  - URINARY INCONTINENCE [None]
